FAERS Safety Report 5253908-1 (Version None)
Quarter: 2007Q1

REPORT INFORMATION
  Report Type: 
  Country: None (occurrence: None)
  Receive Date: 20070228
  Receipt Date: 20070228
  Transmission Date: 20070707
  Serious: Yes (Life-Threatening, Hospitalization)
  Sender: FDA-Public Use
  Company Number: None

PATIENT
  Age: 51 Year
  Sex: Female
  Weight: 75.7 kg

DRUGS (10)
  1. REVLIMID [Suspect]
     Indication: MULTIPLE MYELOMA
     Dosage: 25MG EVERY EVENING ORALLY 047
     Route: 048
  2. PRILOSEC [Concomitant]
  3. OXYCODONE [Concomitant]
  4. AMITRIPTYLINE HCL [Concomitant]
  5. PROZAC [Concomitant]
  6. KLONOPIN [Concomitant]
  7. DECADRON [Concomitant]
  8. ASPIRIN [Concomitant]
  9. FLOVENT [Concomitant]
  10. ALBUTEROL [Concomitant]

REACTIONS (6)
  - DYSPHAGIA [None]
  - ESCHAR [None]
  - ODYNOPHAGIA [None]
  - PHARYNGOLARYNGEAL PAIN [None]
  - RASH [None]
  - SCAB [None]
